FAERS Safety Report 6085680-X (Version None)
Quarter: 2009Q1

REPORT INFORMATION
  Report Type: 
  Country: None (occurrence: None)
  Receive Date: 20090220
  Receipt Date: 20090210
  Transmission Date: 20090719
  Serious: Yes (Other)
  Sender: FDA-Public Use
  Company Number: US-PFIZER INC-2009168791

PATIENT
  Sex: Female
  Weight: 63.502 kg

DRUGS (5)
  1. SOLU-MEDROL [Suspect]
     Indication: WHEEZING
     Dates: start: 20081128, end: 20081205
  2. SOLU-MEDROL [Suspect]
     Indication: ASTHMA
  3. SOLU-MEDROL [Suspect]
     Indication: BRONCHITIS
  4. ADVIL LIQUI-GELS [Concomitant]
  5. MOTRIN [Concomitant]

REACTIONS (1)
  - OEDEMA PERIPHERAL [None]
